FAERS Safety Report 9605879 (Version 1)
Quarter: 2013Q4

REPORT INFORMATION
  Report Type: Spontaneous
  Country: US (occurrence: US)
  Receive Date: 20131008
  Receipt Date: 20131008
  Transmission Date: 20140711
  Serious: Yes (Other)
  Sender: FDA-Public Use
  Company Number: US-WATSON-2013-17436

PATIENT
  Age: 60 Year
  Sex: Male
  Weight: 70 kg

DRUGS (7)
  1. BUPROPION HYDROCHLORIDE XL (WATSON LABORATORIES) [Suspect]
     Indication: ANTIDEPRESSANT THERAPY
     Dosage: 150 MG, DAILY
     Route: 048
     Dates: start: 20130913, end: 20130921
  2. METOPROLOL [Concomitant]
     Indication: MYOCARDIAL INFARCTION
     Dosage: 25 MG, TID
     Route: 048
     Dates: start: 199307
  3. MORPHINE SULPHATE [Concomitant]
     Indication: PAIN
     Dosage: 15 MG, EVERY 4 HOUR PRN
     Route: 048
     Dates: start: 201101
  4. FENTANYL                           /00174602/ [Concomitant]
     Indication: PAIN
     Dosage: 25 MCG Q 48 HOURS
     Route: 062
     Dates: start: 201209
  5. HYDROCHLOROTHIAZIDE [Concomitant]
     Indication: HYPERTENSION
     Dosage: 25 MG, DAILY
     Route: 048
     Dates: start: 201308
  6. ONDANSETRON [Concomitant]
     Indication: NAUSEA
     Dosage: 8 MG, PRN
     Route: 048
     Dates: start: 201006
  7. MULTIVITAMIN                       /00097801/ [Concomitant]
     Indication: VITAMIN SUPPLEMENTATION
     Dosage: 2 TABS PO DAILY
     Route: 048
     Dates: start: 1992

REACTIONS (7)
  - Suicidal ideation [Recovered/Resolved]
  - Negative thoughts [Recovered/Resolved]
  - Tachyphrenia [Recovered/Resolved]
  - Anxiety [Recovered/Resolved]
  - Heart rate increased [Recovered/Resolved]
  - Respiratory rate increased [Recovered/Resolved]
  - Hyperhidrosis [Recovered/Resolved]
